FAERS Safety Report 20327881 (Version 2)
Quarter: 2022Q1

REPORT INFORMATION
  Report Type: Spontaneous
  Country: US (occurrence: US)
  Receive Date: 20220112
  Receipt Date: 20220113
  Transmission Date: 20220424
  Serious: No
  Sender: FDA-Public Use
  Company Number: US-MYLANLABS-2021M1093538

PATIENT
  Sex: Male

DRUGS (1)
  1. LIDOCAINE PATCH [Suspect]
     Active Substance: LIDOCAINE
     Indication: Pain management
     Dosage: 5 PERCENT
     Route: 003

REACTIONS (3)
  - Drug ineffective for unapproved indication [Unknown]
  - Product adhesion issue [Unknown]
  - Product quality issue [Unknown]
